FAERS Safety Report 24379856 (Version 3)
Quarter: 2024Q4

REPORT INFORMATION
  Report Type: Spontaneous
  Country: US (occurrence: US)
  Receive Date: 20240930
  Receipt Date: 20241104
  Transmission Date: 20250114
  Serious: No
  Sender: PFIZER
  Company Number: US-PFIZER INC-202400264804

PATIENT
  Age: 51 Year
  Sex: Male

DRUGS (1)
  1. ELREXFIO [Suspect]
     Active Substance: ELRANATAMAB-BCMM
     Indication: Plasma cell myeloma
     Dosage: 4 DF TAKING FOUR SHOTS OF ELREXFIO

REACTIONS (4)
  - Rash [Unknown]
  - Skin exfoliation [Unknown]
  - Pruritus [Unknown]
  - Skin warm [Unknown]
